FAERS Safety Report 9079647 (Version 1)
Quarter: 2013Q1

REPORT INFORMATION
  Report Type: Report from Study
  Country: US (occurrence: US)
  Receive Date: 20130130
  Receipt Date: 20130130
  Transmission Date: 20140127
  Serious: No
  Sender: FDA-Public Use
  Company Number: US-ABBOTT-12P-163-0962744-00

PATIENT
  Age: 36 Year
  Sex: Female
  Weight: 90.8 kg

DRUGS (6)
  1. HUMIRA 40 MG/0.8 ML PEN [Suspect]
     Indication: RHEUMATOID ARTHRITIS
     Dates: start: 201112
  2. ADVAIR [Concomitant]
     Indication: ASTHMA
  3. SUMATRIPTAN [Concomitant]
     Indication: MIGRAINE
  4. OMEPRAZOLE [Concomitant]
     Indication: GASTROOESOPHAGEAL REFLUX DISEASE
  5. FUROSEMIDE [Concomitant]
     Indication: FLUID RETENTION
  6. ALLEGRA [Concomitant]
     Indication: HYPERSENSITIVITY

REACTIONS (1)
  - Latent tuberculosis [Recovered/Resolved]
